FAERS Safety Report 20583849 (Version 5)
Quarter: 2022Q2

REPORT INFORMATION
  Report Type: Spontaneous
  Country: FR (occurrence: FR)
  Receive Date: 20220311
  Receipt Date: 20220606
  Transmission Date: 20220720
  Serious: Yes (Death, Other)
  Sender: FDA-Public Use
  Company Number: FR-PFIZER INC-202200386641

PATIENT
  Age: 99 Year
  Sex: Female
  Weight: 73 kg

DRUGS (10)
  1. PAXLOVID [Suspect]
     Active Substance: NIRMATRELVIR\RITONAVIR
     Indication: COVID-19 treatment
     Dosage: [PF-07321332 150MG] / [RITONAVIR 100MG] 2X/DAY
     Dates: start: 20220211, end: 20220214
  2. LOVENOX [Suspect]
     Active Substance: ENOXAPARIN SODIUM
     Indication: Atrial fibrillation
     Dosage: 7000 IU, 2X/DAY (08.00 AM AND 08.00 PM)
     Route: 058
     Dates: start: 20220210
  3. LOVENOX [Suspect]
     Active Substance: ENOXAPARIN SODIUM
     Indication: Arrhythmia
  4. BISOPROLOL [Concomitant]
     Active Substance: BISOPROLOL
     Indication: Atrial fibrillation
     Dosage: 1.25 MG, 1X/DAY (MORNING)
     Route: 048
     Dates: start: 20220210
  5. BISOPROLOL [Concomitant]
     Active Substance: BISOPROLOL
     Indication: Arrhythmia
  6. ACETAMINOPHEN [Concomitant]
     Active Substance: ACETAMINOPHEN
     Indication: Pain
     Dosage: 1 G, 3X/DAY WITH INTERVAL OF 6 HOURS AS NEEDED
     Route: 048
     Dates: start: 20220210
  7. ACETAMINOPHEN [Concomitant]
     Active Substance: ACETAMINOPHEN
     Indication: Pyrexia
  8. FUNGIZONE [Concomitant]
     Active Substance: AMPHOTERICIN B
     Indication: Oral fungal infection
     Dosage: 1 DF, 3X/DAY (AFTER MEAL, AS MOUTHWASH)
     Dates: start: 20220211
  9. POLYETHYLENE GLYCOLS [Concomitant]
     Active Substance: POLYETHYLENE GLYCOLS
     Indication: Constipation
     Dosage: 3350, 5,9 G
     Route: 048
     Dates: start: 20220212
  10. FLUTICASONE PROPIONATE AND SALMETEROL [Concomitant]
     Active Substance: FLUTICASONE PROPIONATE\SALMETEROL XINAFOATE
     Indication: Chronic obstructive pulmonary disease
     Dosage: 2 DF, 1X/DAY (MORNING)
     Dates: start: 20220211

REACTIONS (18)
  - Haemorrhage [Fatal]
  - Intra-abdominal haematoma [Fatal]
  - Abdominal wall haemorrhage [Fatal]
  - Bleeding time prolonged [Fatal]
  - Acute kidney injury [Fatal]
  - Off label use [Fatal]
  - Drug ineffective for unapproved indication [Fatal]
  - COVID-19 [Fatal]
  - Bronchitis [Fatal]
  - Chronic obstructive pulmonary disease [Fatal]
  - Lung disorder [Fatal]
  - Small intestinal obstruction [Fatal]
  - Pneumonia aspiration [Fatal]
  - Anaemia [Fatal]
  - Acute coronary syndrome [Fatal]
  - Ischaemic hepatitis [Fatal]
  - Altered state of consciousness [Fatal]
  - Shock haemorrhagic [Fatal]

NARRATIVE: CASE EVENT DATE: 20220211
